FAERS Safety Report 18081162 (Version 1)
Quarter: 2020Q3

REPORT INFORMATION
  Report Type: Spontaneous
  Country: CN (occurrence: CN)
  Receive Date: 20200728
  Receipt Date: 20200728
  Transmission Date: 20201103
  Serious: Yes (Other)
  Sender: FDA-Public Use
  Company Number: CN-ROCHE-2645580

PATIENT
  Age: 44 Year
  Sex: Male
  Weight: 55 kg

DRUGS (37)
  1. HERCEPTIN [Suspect]
     Active Substance: TRASTUZUMAB
     Indication: METASTASES TO BONE
     Dosage: LOADING DOSE
     Route: 065
  2. DOCETAXEL. [Concomitant]
     Active Substance: DOCETAXEL
     Dosage: DAY 1
     Dates: start: 20181106
  3. FLUOROURACIL. [Concomitant]
     Active Substance: FLUOROURACIL
     Indication: METASTASES TO BONE
  4. HERCEPTIN [Suspect]
     Active Substance: TRASTUZUMAB
     Indication: GASTRIC CANCER
     Dosage: LOADING DOSE
     Route: 065
  5. HERCEPTIN [Suspect]
     Active Substance: TRASTUZUMAB
     Dosage: DAY 1
     Route: 065
     Dates: start: 20181106
  6. XELODA [Suspect]
     Active Substance: CAPECITABINE
     Indication: GASTRIC CANCER
     Route: 048
     Dates: start: 20191126
  7. APATINIB [Concomitant]
     Active Substance: APATINIB
     Indication: METASTASES TO BONE
     Dates: start: 20181011
  8. DOCETAXEL. [Concomitant]
     Active Substance: DOCETAXEL
     Indication: METASTASES TO BONE
  9. TEGAFUR GIMERACIL AND OTERACIL POTASSIUM [Concomitant]
     Active Substance: GIMERACIL\OTERACIL\TEGAFUR
     Indication: METASTASES TO BONE
     Dosage: DAY 1?14
     Dates: start: 20181106
  10. TEGAFUR GIMERACIL AND OTERACIL POTASSIUM [Concomitant]
     Active Substance: GIMERACIL\OTERACIL\TEGAFUR
     Dates: start: 20190531
  11. PACLITAXEL ALBUMIN [Concomitant]
     Active Substance: PACLITAXEL
     Indication: METASTASES TO BONE
     Dosage: DAY 1, 8
     Dates: start: 20190723
  12. CISPLATIN. [Concomitant]
     Active Substance: CISPLATIN
     Indication: GASTRIC CANCER
     Dosage: DAY 1, 8
     Dates: start: 20190629
  13. PYROTINIB [Concomitant]
     Active Substance: PYROTINIB
     Indication: METASTASES TO BONE
  14. TEGAFUR GIMERACIL AND OTERACIL POTASSIUM [Concomitant]
     Active Substance: GIMERACIL\OTERACIL\TEGAFUR
     Indication: GASTRIC CANCER
     Dosage: DAY 1?14
  15. EPIRUBICIN [Concomitant]
     Active Substance: EPIRUBICIN
     Indication: GASTRIC CANCER
     Dosage: DAY 1
     Dates: start: 20191126
  16. PYROTINIB [Concomitant]
     Active Substance: PYROTINIB
     Indication: GASTRIC CANCER
  17. AVASTIN [Suspect]
     Active Substance: BEVACIZUMAB
     Indication: GASTRIC CANCER
     Dosage: DAY 1
     Route: 065
     Dates: start: 20181011
  18. DOCETAXEL. [Concomitant]
     Active Substance: DOCETAXEL
     Indication: GASTRIC CANCER
     Dosage: DAY 1
     Dates: start: 20181011
  19. OXALIPLATIN. [Concomitant]
     Active Substance: OXALIPLATIN
     Indication: GASTRIC CANCER
  20. OXALIPLATIN. [Concomitant]
     Active Substance: OXALIPLATIN
     Indication: METASTASES TO BONE
     Dosage: DAY1
     Dates: start: 20181106
  21. CISPLATIN. [Concomitant]
     Active Substance: CISPLATIN
     Indication: METASTASES TO BONE
     Dosage: DAY 1, 8
     Dates: start: 20190723
  22. CALCIUM FOLINATE [Concomitant]
     Active Substance: LEUCOVORIN CALCIUM
     Indication: GASTRIC CANCER
     Dosage: DAY 1
     Dates: start: 20191225
  23. HERCEPTIN [Suspect]
     Active Substance: TRASTUZUMAB
     Route: 065
     Dates: start: 20190531
  24. XELODA [Suspect]
     Active Substance: CAPECITABINE
     Indication: METASTASES TO BONE
  25. EPIRUBICIN [Concomitant]
     Active Substance: EPIRUBICIN
     Indication: METASTASES TO BONE
  26. IRINOTECAN [Concomitant]
     Active Substance: IRINOTECAN
     Indication: METASTASES TO BONE
  27. AVASTIN [Suspect]
     Active Substance: BEVACIZUMAB
     Indication: METASTASES TO BONE
  28. PACLITAXEL ALBUMIN [Concomitant]
     Active Substance: PACLITAXEL
     Indication: GASTRIC CANCER
     Dosage: DAY 1, 8
     Dates: start: 20190629
  29. FLUOROURACIL. [Concomitant]
     Active Substance: FLUOROURACIL
     Indication: GASTRIC CANCER
     Route: 042
     Dates: start: 20191225
  30. HERCEPTIN [Suspect]
     Active Substance: TRASTUZUMAB
     Route: 065
     Dates: start: 20190415
  31. TEGAFUR GIMERACIL AND OTERACIL POTASSIUM [Concomitant]
     Active Substance: GIMERACIL\OTERACIL\TEGAFUR
     Dates: start: 20190415
  32. IRINOTECAN [Concomitant]
     Active Substance: IRINOTECAN
     Indication: GASTRIC CANCER
     Dosage: DAY 1
     Dates: start: 20191225
  33. CALCIUM FOLINATE [Concomitant]
     Active Substance: LEUCOVORIN CALCIUM
     Indication: METASTASES TO BONE
  34. HERCEPTIN [Suspect]
     Active Substance: TRASTUZUMAB
     Route: 065
     Dates: start: 20190629
  35. APATINIB [Concomitant]
     Active Substance: APATINIB
     Indication: GASTRIC CANCER
     Dosage: DAY 1
     Dates: start: 20181011
  36. APATINIB [Concomitant]
     Active Substance: APATINIB
     Dates: start: 20190531
  37. OXALIPLATIN. [Concomitant]
     Active Substance: OXALIPLATIN
     Dosage: DAY 1
     Dates: start: 20191126

REACTIONS (7)
  - White blood cell count decreased [Unknown]
  - Platelet count decreased [Unknown]
  - Intentional product use issue [Unknown]
  - Enteritis infectious [Unknown]
  - Off label use [Unknown]
  - Hepatic function abnormal [Unknown]
  - Gastrointestinal disorder [Unknown]
